FAERS Safety Report 7242332-8 (Version None)
Quarter: 2011Q1

REPORT INFORMATION
  Report Type: 
  Country: None (occurrence: None)
  Receive Date: 20110125
  Receipt Date: 20110114
  Transmission Date: 20110831
  Serious: Yes (Hospitalization)
  Sender: FDA-Public Use
  Company Number: US-BIOGENIDEC-2011BI001873

PATIENT
  Age: 49 Year
  Sex: Male

DRUGS (1)
  1. TYSABRI [Suspect]
     Indication: MULTIPLE SCLEROSIS
     Route: 042
     Dates: start: 20080428, end: 20101126

REACTIONS (5)
  - APPENDICITIS PERFORATED [None]
  - LUNG INFECTION [None]
  - DRUG INEFFECTIVE [None]
  - WEIGHT DECREASED [None]
  - VISUAL ACUITY REDUCED [None]
